FAERS Safety Report 9095653 (Version 2)
Quarter: 2013Q1

REPORT INFORMATION
  Report Type: Spontaneous
  Country: IN (occurrence: IN)
  Receive Date: 20130220
  Receipt Date: 20130308
  Transmission Date: 20140127
  Serious: Yes (Hospitalization, Other)
  Sender: FDA-Public Use
  Company Number: PHHY2013IN014977

PATIENT
  Age: 50 Year
  Sex: Male

DRUGS (21)
  1. SIMULECT / CHI 621A / SDZ CHI 621 [Suspect]
     Indication: RENAL TRANSPLANT
     Dosage: 20 MG, UNK
  2. NEORAL [Concomitant]
     Dosage: 125 MG, BID (10AM-10PM)
  3. RENODAPT [Concomitant]
     Dosage: 360 MG, BID (10AM-10PM0
  4. OMNACORTIL [Concomitant]
     Dosage: 20 MG, QD (9AM)
  5. SEPTRAN [Concomitant]
     Dosage: 1 DF, QD (10 PM)
  6. THYROXINE [Concomitant]
     Dosage: 75 UG, QD (6 AM, EMPTY STOMACH)
  7. ECOSPRIN [Concomitant]
     Dosage: 150 MG, QD (2 PM)
  8. CANDID MOUTH [Concomitant]
     Dosage: 20 DRP, TID (8 AM,2 PM, 10 PM)
  9. MINIPRESS XL [Concomitant]
     Dosage: 5 MG, QD ( 10 PM)
  10. FLAVIDON-MR [Concomitant]
     Dosage: 35 MG, TID ( 8AM, 2PM, 10 PM)
  11. NIKORAN [Concomitant]
     Dosage: 5 MG, QD (10 AM)
  12. CARDIVAS [Concomitant]
     Dosage: 3.125 MG, BID (10 AM)
  13. ARKAMINE [Concomitant]
     Dosage: 0.1 MG, TID 1/2 TAB (8AM, 2PM, 10PM)
  14. PAN-D [Concomitant]
     Dosage: UNK UKN, BID BID (6AM,EMPTY STOMACH)
  15. LEVOFLOX [Concomitant]
     Dosage: 500 MG, QD (10 AM)
  16. FLOTRAL [Concomitant]
     Dosage: 10 MG, QD (10PM)
  17. URISPAS [Concomitant]
     Dosage: 1 DF, BID 1 TABLET ( 10AM,10PM)
  18. LANTUS [Concomitant]
     Dosage: 36 UNITS (10 PM)
     Route: 058
  19. ATORVA [Concomitant]
     Dosage: 20 MG, QD (10 PM)
  20. TACROLIMUS [Concomitant]
     Dosage: UNK UKN, UNK
  21. CICLOSPORIN [Concomitant]
     Dosage: UNK UKN, UNK

REACTIONS (11)
  - Thrombotic microangiopathy [Unknown]
  - Complications of transplanted kidney [Unknown]
  - Glomerulosclerosis [Unknown]
  - Glomerulonephritis [Unknown]
  - Inflammation [Unknown]
  - Proteinuria [Unknown]
  - Blood urine present [Unknown]
  - Kidney transplant rejection [Unknown]
  - Blood creatinine increased [Unknown]
  - Haemoglobin decreased [Unknown]
  - Acute coronary syndrome [Unknown]
